FAERS Safety Report 8485987-2 (Version None)
Quarter: 2012Q2

REPORT INFORMATION
  Report Type: 
  Country: None (occurrence: None)
  Receive Date: 20120626
  Receipt Date: 20120621
  Transmission Date: 20120825
  Serious: Yes (Disabling)
  Sender: FDA-Public Use
  Company Number: GER/UKI/12/0024756

PATIENT
  Age: 83 Year
  Sex: Female
  Weight: 49.1 kg

DRUGS (4)
  1. CONOTRANE (CONOTRANE /00604301/) [Concomitant]
  2. TAMOXIFEN CITRATE [Concomitant]
  3. ANASTROZOLE [Suspect]
     Indication: PRODUCT USED FOR UNKNOWN INDICATION
     Dates: start: 20120308
  4. IBUPROFEN [Concomitant]

REACTIONS (1)
  - SUICIDAL IDEATION [None]
